FAERS Safety Report 9889819 (Version 1)
Quarter: 2014Q1

REPORT INFORMATION
  Report Type: Spontaneous
  Country: TN (occurrence: TN)
  Receive Date: 20140212
  Receipt Date: 20140212
  Transmission Date: 20141002
  Serious: Yes (Hospitalization)
  Sender: FDA-Public Use
  Company Number: TN-ROCHE-1348023

PATIENT
  Age: 28 Year
  Sex: Male

DRUGS (5)
  1. AVASTIN [Suspect]
     Indication: RECTAL NEOPLASM
     Route: 042
  2. AVASTIN [Suspect]
     Indication: METASTASES TO LUNG
  3. FOLINIC ACID [Concomitant]
  4. FLUOROURACIL [Concomitant]
  5. OXALIPLATIN [Concomitant]

REACTIONS (1)
  - Cardiac arrest [Unknown]
